FAERS Safety Report 19126139 (Version 1)
Quarter: 2021Q2

REPORT INFORMATION
  Report Type: Spontaneous
  Country: US (occurrence: US)
  Receive Date: 20210412
  Receipt Date: 20210412
  Transmission Date: 20210717
  Serious: No
  Sender: FDA-Public Use
  Company Number: None

PATIENT
  Age: 65 Year
  Sex: Female
  Weight: 54 kg

DRUGS (7)
  1. ALLEGRA NASAL SPRAY [Concomitant]
  2. ALLAWAY EYE DROPS [Concomitant]
  3. OXYBUTYNIN 5 MG TABLET [Suspect]
     Active Substance: OXYBUTYNIN
     Indication: URINARY TRACT INFECTION
     Dosage: ?          QUANTITY:30 TABLET(S);?
     Route: 048
     Dates: start: 20210330, end: 20210410
  4. HYDROXYCHLOROQUINE [Concomitant]
     Active Substance: HYDROXYCHLOROQUINE
  5. PANTOPRAZOLE [Concomitant]
     Active Substance: PANTOPRAZOLE
  6. ALPRAZOLAM. [Concomitant]
     Active Substance: ALPRAZOLAM
  7. LEVOTHYROXINE. [Concomitant]
     Active Substance: LEVOTHYROXINE

REACTIONS (8)
  - Burning sensation [None]
  - Hiatus hernia [None]
  - Headache [None]
  - Hypophagia [None]
  - Gastrooesophageal reflux disease [None]
  - Pain [None]
  - Dizziness [None]
  - Regurgitation [None]

NARRATIVE: CASE EVENT DATE: 20210401
